FAERS Safety Report 6528622-2 (Version None)
Quarter: 2009Q4

REPORT INFORMATION
  Report Type: 
  Country: None (occurrence: None)
  Receive Date: 20091222
  Receipt Date: 20091105
  Transmission Date: 20100525
  Serious: No
  Sender: FDA-Public Use
  Company Number: ALL1-2009-03516

PATIENT
  Age: 17 Year
  Sex: Male
  Weight: 90.7 kg

DRUGS (2)
  1. VYVANSE [Suspect]
     Indication: ATTENTION DEFICIT/HYPERACTIVITY DISORDER
     Dosage: 30 MG, 1X/DAY: QD, ORAL
     Route: 048
     Dates: start: 20080101
  2. ADVIL /00044201/ (MEFENAMIC ACID) [Concomitant]

REACTIONS (6)
  - ANGER [None]
  - IMPULSIVE BEHAVIOUR [None]
  - IRRITABILITY [None]
  - OFF LABEL USE [None]
  - SOMNOLENCE [None]
  - WITHDRAWAL SYNDROME [None]
